FAERS Safety Report 7527621-1 (Version None)
Quarter: 2011Q2

REPORT INFORMATION
  Report Type: 
  Country: None (occurrence: None)
  Receive Date: 20110527
  Receipt Date: 20110512
  Transmission Date: 20111010
  Serious: Yes (Other)
  Sender: FDA-Public Use
  Company Number: 905535

PATIENT
  Age: 75 Year
  Sex: Male

DRUGS (11)
  1. THIOPENTAL SODIUM [Suspect]
     Indication: PRODUCT USED FOR UNKNOWN INDICATION
     Dosage: 250 MG, 1 TIMES
     Dates: start: 20100615, end: 20100615
  2. PANCURONIUM BROMIDE [Suspect]
     Indication: PRODUCT USED FOR UNKNOWN INDICATION
     Dosage: 8 MG, 1 TIMES
     Dates: start: 20100615, end: 20100615
  3. CEFAZOLIN [Suspect]
     Indication: PRODUCT USED FOR UNKNOWN INDICATION
     Dosage: 2 GRAMS, 1 TIMES
     Dates: start: 20100615, end: 20100615
  4. HEPARIN CALCIUM [Suspect]
     Indication: PRODUCT USED FOR UNKNOWN INDICATION
     Dosage: 25000 IU, 1 TIMES
     Dates: start: 20100615, end: 20100615
  5. METOPROLOL SUCCINATE [Suspect]
     Indication: PRODUCT USED FOR UNKNOWN INDICATION
     Dosage: 4 MG, 1 TIMES
     Dates: start: 20100615, end: 20100615
  6. NOREPINEPHRINE BITARTRATE [Suspect]
     Indication: PRODUCT USED FOR UNKNOWN INDICATION
     Dates: start: 20100615
  7. PROTAMINE SULFATE [Suspect]
     Indication: PRODUCT USED FOR UNKNOWN INDICATION
     Dosage: 350 MG, 1 TIME
     Dates: start: 20100615, end: 20100615
  8. FENTANYL CITRATE [Suspect]
     Indication: PRODUCT USED FOR UNKNOWN INDICATION
     Dosage: 1500 MCG
     Dates: start: 20100615
  9. TRANEXAMIC ACID [Suspect]
     Indication: PRODUCT USED FOR UNKNOWN INDICATION
     Dosage: 5 GM, 1 TIME
     Dates: start: 20100615, end: 20100615
  10. PROPOFOL [Suspect]
     Indication: PRODUCT USED FOR UNKNOWN INDICATION
     Dosage: 20 MG PER HOUR
     Dates: start: 20100615
  11. MIDAZOLAM HCL [Suspect]
     Dosage: 2 MG, 1 TIMES,
     Dates: start: 20100615, end: 20100615

REACTIONS (1)
  - CONVULSION [None]
